FAERS Safety Report 6226358-9 (Version None)
Quarter: 2009Q2

REPORT INFORMATION
  Report Type: 
  Country: None (occurrence: None)
  Receive Date: 20090612
  Receipt Date: 20090601
  Transmission Date: 20091009
  Serious: Yes (Death)
  Sender: FDA-Public Use
  Company Number: JP-PFIZER INC-2009222562

PATIENT
  Age: 84 Year

DRUGS (2)
  1. VORICONAZOLE [Suspect]
     Indication: ASPERGILLOSIS
     Dosage: 4 MG/KG, 2X/DAY
     Route: 042
     Dates: start: 20090511, end: 20090527
  2. CARBENIN [Concomitant]
     Dates: start: 20090428

REACTIONS (1)
  - DEATH [None]
